FAERS Safety Report 16001316 (Version 4)
Quarter: 2019Q3

REPORT INFORMATION
  Report Type: Spontaneous
  Country: US (occurrence: US)
  Receive Date: 20190225
  Receipt Date: 20190729
  Transmission Date: 20191004
  Serious: Yes (Death, Other)
  Sender: FDA-Public Use
  Company Number: US-ASTRAZENECA-2019SE10575

PATIENT
  Sex: Male

DRUGS (34)
  1. PRILOSEC [Suspect]
     Active Substance: OMEPRAZOLE MAGNESIUM
     Indication: GASTROOESOPHAGEAL REFLUX DISEASE
     Dosage: ONCE A DAY
     Route: 048
     Dates: start: 2004
  2. SINGULAIR [Concomitant]
     Active Substance: MONTELUKAST SODIUM
  3. LORTAB [Concomitant]
     Active Substance: ACETAMINOPHEN\HYDROCODONE BITARTRATE
  4. SPIRONOLACTONE. [Concomitant]
     Active Substance: SPIRONOLACTONE
  5. VALTREX [Concomitant]
     Active Substance: VALACYCLOVIR HYDROCHLORIDE
  6. PRILOSEC OTC [Suspect]
     Active Substance: OMEPRAZOLE MAGNESIUM
     Indication: GASTROOESOPHAGEAL REFLUX DISEASE
     Dosage: ONCE A DAY
     Route: 048
     Dates: end: 2016
  7. ADVAIR DISKUS [Concomitant]
     Active Substance: FLUTICASONE PROPIONATE\SALMETEROL XINAFOATE
  8. LASIX [Concomitant]
     Active Substance: FUROSEMIDE
  9. PRILOSEC [Suspect]
     Active Substance: OMEPRAZOLE MAGNESIUM
     Indication: GASTROOESOPHAGEAL REFLUX DISEASE
     Dosage: ONCE A DAY, GENERIC
     Route: 065
  10. PREDNISONE. [Concomitant]
     Active Substance: PREDNISONE
     Route: 048
     Dates: start: 20120104
  11. ATENOLOL. [Concomitant]
     Active Substance: ATENOLOL
     Route: 048
     Dates: start: 20120104
  12. PROVENTIL HFA [Concomitant]
     Active Substance: ALBUTEROL SULFATE
  13. NASONEX [Concomitant]
     Active Substance: MOMETASONE FUROATE
  14. ULORIC [Concomitant]
     Active Substance: FEBUXOSTAT
  15. ALLOPURINOL. [Concomitant]
     Active Substance: ALLOPURINOL
  16. BACTROBAN [Concomitant]
     Active Substance: MUPIROCIN\MUPIROCIN CALCIUM
  17. LOSARTAN. [Concomitant]
     Active Substance: LOSARTAN
  18. ATACAND [Concomitant]
     Active Substance: CANDESARTAN CILEXETIL
  19. PLAVIX [Concomitant]
     Active Substance: CLOPIDOGREL BISULFATE
  20. PRILOSEC [Suspect]
     Active Substance: OMEPRAZOLE MAGNESIUM
     Indication: GASTROOESOPHAGEAL REFLUX DISEASE
     Route: 048
     Dates: start: 19990101
  21. CRESTOR [Concomitant]
     Active Substance: ROSUVASTATIN CALCIUM
     Route: 048
     Dates: start: 20120104
  22. GLUCOTROL XL [Concomitant]
     Active Substance: GLIPIZIDE
  23. ISOSORBIDE MONONITRATE. [Concomitant]
     Active Substance: ISOSORBIDE MONONITRATE
  24. LEVAQUIN [Concomitant]
     Active Substance: LEVOFLOXACIN
  25. PRILOSEC [Suspect]
     Active Substance: OMEPRAZOLE MAGNESIUM
     Indication: GASTROOESOPHAGEAL REFLUX DISEASE
     Route: 048
  26. CARVEDILOL. [Concomitant]
     Active Substance: CARVEDILOL
  27. DOXYCYCLINE HYCLATE. [Concomitant]
     Active Substance: DOXYCYCLINE HYCLATE
  28. DUONEB [Concomitant]
     Active Substance: ALBUTEROL SULFATE\IPRATROPIUM BROMIDE
  29. LEVOXYL [Concomitant]
     Active Substance: LEVOTHYROXINE SODIUM
  30. KEFLEX [Concomitant]
     Active Substance: CEPHALEXIN
  31. KLOR-CON [Concomitant]
     Active Substance: POTASSIUM CHLORIDE
  32. NITROSTAT [Concomitant]
     Active Substance: NITROGLYCERIN
  33. PROCARDIA [Concomitant]
     Active Substance: NIFEDIPINE
  34. LYRICA [Concomitant]
     Active Substance: PREGABALIN

REACTIONS (6)
  - Death [Fatal]
  - Chronic kidney disease [Unknown]
  - Acute kidney injury [Unknown]
  - Renal failure [Unknown]
  - Renal injury [Unknown]
  - Rebound acid hypersecretion [Unknown]
